FAERS Safety Report 9471698 (Version 3)
Quarter: 2013Q4

REPORT INFORMATION
  Report Type: Report from Study
  Country: BR (occurrence: BR)
  Receive Date: 20130822
  Receipt Date: 20131129
  Transmission Date: 20140711
  Serious: Yes (Other)
  Sender: FDA-Public Use
  Company Number: PHHY2013BR059172

PATIENT
  Sex: Female
  Weight: 87 kg

DRUGS (10)
  1. LEPONEX [Suspect]
     Indication: SCHIZOPHRENIA
     Dosage: 3 DF, (3 TABLETS PER DAY, AT TREATMENT BEGINNING)
     Route: 048
  2. LEPONEX [Suspect]
     Dosage: 8 DF, (8 TABLETS PER DAY)
     Route: 048
  3. LEPONEX [Suspect]
     Dosage: UNK , 100 MG TWICE DAILY
     Route: 048
     Dates: start: 200705
  4. CLOZAPINE [Suspect]
     Indication: SCHIZOPHRENIA
     Dosage: 8 DF, (8 TABLETS PER DAY)
     Route: 048
  5. CLOZAPINE [Suspect]
     Dosage: UNK, 100 MG TWICE DAILY
     Route: 048
  6. RISPERIDONE [Suspect]
     Dosage: UNK
  7. NEOTIAPIM [Suspect]
     Indication: SCHIZOPHRENIA
     Dosage: 25 MG, UNK
     Route: 048
  8. NEOTIAPIM [Suspect]
     Dosage: 3 DF, UNK
     Dates: start: 20130615
  9. EQUILID [Suspect]
     Indication: POTENTIATING DRUG INTERACTION
     Dosage: 3 DF, QD
  10. EQUILID [Suspect]
     Indication: SCHIZOPHRENIA

REACTIONS (19)
  - Panic disorder [Not Recovered/Not Resolved]
  - Hallucination [Not Recovered/Not Resolved]
  - Schizophrenia [Not Recovered/Not Resolved]
  - Anxiety [Not Recovered/Not Resolved]
  - Irritability [Not Recovered/Not Resolved]
  - Paraesthesia [Not Recovered/Not Resolved]
  - Lethargy [Recovered/Resolved]
  - Screaming [Not Recovered/Not Resolved]
  - Crying [Not Recovered/Not Resolved]
  - Aggression [Not Recovered/Not Resolved]
  - Stress [Not Recovered/Not Resolved]
  - Fear [Not Recovered/Not Resolved]
  - Agitation [Not Recovered/Not Resolved]
  - Tremor [Not Recovered/Not Resolved]
  - Erythema [Not Recovered/Not Resolved]
  - Restlessness [Not Recovered/Not Resolved]
  - Salivary hypersecretion [Not Recovered/Not Resolved]
  - Tachycardia [Not Recovered/Not Resolved]
  - No therapeutic response [Unknown]
